FAERS Safety Report 15310765 (Version 1)
Quarter: 2018Q3

REPORT INFORMATION
  Report Type: Spontaneous
  Country: US (occurrence: US)
  Receive Date: 20180813
  Receipt Date: 20180813
  Transmission Date: 20181010
  Serious: Yes (Other)
  Sender: FDA-Public Use
  Company Number: None

PATIENT
  Age: 53 Year
  Sex: Male
  Weight: 98.1 kg

DRUGS (1)
  1. VITAMIN B12 [Suspect]
     Active Substance: CYANOCOBALAMIN
     Indication: VITAMIN B12 DEFICIENCY
     Dosage: ?          QUANTITY:1 INJECTION(S);OTHER FREQUENCY:INJECTION BY DR.;?
     Route: 030
     Dates: start: 20150708, end: 20150708

REACTIONS (3)
  - Recalled product [None]
  - Extraskeletal myxoid chondrosarcoma [None]
  - Injection site pain [None]

NARRATIVE: CASE EVENT DATE: 20151020
